FAERS Safety Report 4681162-8 (Version None)
Quarter: 2005Q2

REPORT INFORMATION
  Report Type: 
  Country: None (occurrence: None)
  Receive Date: 20050602
  Receipt Date: 20050503
  Transmission Date: 20051028
  Serious: Yes (Hospitalization)
  Sender: FDA-Public Use
  Company Number: CIO05004199

PATIENT
  Age: 44 Year
  Sex: Male
  Weight: 71.2 kg

DRUGS (1)
  1. DAYQUIL NON-DROWSY SINUS (PARACETAMOL 325 MG, PSEUDOEPHEDRINE HYDROCHL [Suspect]
     Indication: SINUS HEADACHE
     Dosage: 1 LIQCAP, 1 ONLY FOR 1 DAY, ORAL
     Route: 048
     Dates: start: 20050213, end: 20050213

REACTIONS (7)
  - ATRIAL FIBRILLATION [None]
  - BACK PAIN [None]
  - CARDIAC FIBRILLATION [None]
  - FEAR [None]
  - HEART RATE INCREASED [None]
  - MUSCULOSKELETAL PAIN [None]
  - PALPITATIONS [None]
